FAERS Safety Report 7490736-0 (Version None)
Quarter: 2011Q2

REPORT INFORMATION
  Report Type: 
  Country: None (occurrence: None)
  Receive Date: 20110519
  Receipt Date: 20091031
  Transmission Date: 20111010
  Serious: Yes (Hospitalization, Other)
  Sender: FDA-Public Use
  Company Number: US-BAYER-200937670NA

PATIENT
  Age: 81 Year
  Sex: Male
  Weight: 200 kg

DRUGS (14)
  1. TRASYLOL [Suspect]
     Indication: AORTIC VALVE REPLACEMENT
     Dosage: 1 ML INITIAL (TEST) DOSE
     Route: 042
     Dates: start: 20021023
  2. TRASYLOL [Suspect]
     Indication: CORONARY ARTERY BYPASS
     Dosage: 200 MILLILITER, 50 CC/HOUR
     Route: 042
     Dates: start: 20021023
  3. NORVASC [Concomitant]
     Dosage: 5 MG
     Route: 048
  4. VERSED [Concomitant]
     Dosage: UNK
     Dates: start: 20021023
  5. INSULIN [Concomitant]
     Dosage: UNK
     Dates: start: 20021023
  6. HEPARIN [Concomitant]
     Dosage: 50,000 UNITS
     Dates: start: 20021023
  7. LIPITOR [Concomitant]
     Dosage: 10 MG
     Route: 048
  8. DIOVAN [Concomitant]
     Dosage: 160 MG
     Route: 048
  9. ALLOPURINOL [Concomitant]
     Dosage: 300 MG
     Route: 048
  10. LASIX [Concomitant]
     Dosage: 40 MG PUMP
  11. ACETYLSALICYLIC ACID SRT [Concomitant]
     Dosage: 1 TABLET
     Route: 048
  12. INDOCIN [Concomitant]
     Dosage: WHENEVER NEEDED
  13. TAGAMET [Concomitant]
     Dosage: 400 MG
     Route: 048
  14. VANCOMYCIN [Concomitant]
     Dosage: UNK
     Dates: start: 20021023

REACTIONS (10)
  - RENAL IMPAIRMENT [None]
  - ANXIETY [None]
  - ANHEDONIA [None]
  - RENAL FAILURE [None]
  - PAIN [None]
  - FEAR [None]
  - EMOTIONAL DISTRESS [None]
  - UNEVALUABLE EVENT [None]
  - STRESS [None]
  - INJURY [None]
